FAERS Safety Report 16183102 (Version 1)
Quarter: 2019Q2

REPORT INFORMATION
  Report Type: Report from Study
  Country: None (occurrence: GB)
  Receive Date: 20190411
  Receipt Date: 20190411
  Transmission Date: 20190711
  Serious: Yes (Other)
  Sender: FDA-Public Use
  Company Number: GB-ABBVIE-19S-167-2736746-00

PATIENT
  Sex: Male

DRUGS (1)
  1. DUODOPA [Suspect]
     Active Substance: CARBIDOPA\LEVODOPA
     Indication: PARKINSON^S DISEASE
     Dosage: 5MG/1ML??20MG/1ML,100ML PACK(S)??(1.5 PER DAY) AND ASD (DAILY).
     Route: 050

REACTIONS (4)
  - Abnormal dreams [Not Recovered/Not Resolved]
  - Chronic myeloid leukaemia [Unknown]
  - Constipation [Unknown]
  - Poor quality sleep [Not Recovered/Not Resolved]
